FAERS Safety Report 18532121 (Version 6)
Quarter: 2021Q2

REPORT INFORMATION
  Report Type: Spontaneous
  Country: JP (occurrence: JP)
  Receive Date: 20201123
  Receipt Date: 20210531
  Transmission Date: 20210717
  Serious: Yes (Hospitalization, Other)
  Sender: FDA-Public Use
  Company Number: JP-AMGEN-JPNSP2020185599

PATIENT
  Age: 69 Year
  Sex: Male
  Weight: 50.6 kg

DRUGS (33)
  1. ROCALTROL [Concomitant]
     Active Substance: CALCITRIOL
     Dosage: 0.5 MICROGRAM, QWK
     Route: 065
     Dates: start: 20200312, end: 20200407
  2. ROCALTROL [Concomitant]
     Active Substance: CALCITRIOL
     Dosage: 0.5 MICROGRAM, Q56H
     Route: 065
     Dates: start: 20200409, end: 20200421
  3. ROCALTROL [Concomitant]
     Active Substance: CALCITRIOL
     Dosage: 0.5 MICROGRAM, QWK
     Route: 065
     Dates: start: 20200514, end: 20200609
  4. KIKLIN [Concomitant]
     Active Substance: BIXALOMER
     Dosage: 3500 MG, EVERYDAY
     Route: 048
     Dates: start: 20200528, end: 20200610
  5. ROCALTROL [Concomitant]
     Active Substance: CALCITRIOL
     Dosage: 1 UG, QW
     Route: 065
     Dates: start: 20200820, end: 20201103
  6. PRECIPITATED CALCIUM CARBONATE [Concomitant]
     Active Substance: CALCIUM CARBONATE
     Dosage: 1000 MG, Q8H
     Route: 048
     Dates: start: 20201029
  7. ROCALTROL [Concomitant]
     Active Substance: CALCITRIOL
     Indication: HYPERPARATHYROIDISM SECONDARY
     Dosage: 0.5 MICROGRAM, Q56H
     Route: 065
     Dates: start: 20200109, end: 20200305
  8. HISHIPHAGEN C [CYSTEINE HYDROCHLORIDE;GLYCINE;GLYCYRRHIZIC ACID] [Concomitant]
     Indication: PRURITUS
     Dosage: 60 MILLILITER, QWK
     Route: 042
     Dates: start: 20200107
  9. ROCALTROL [Concomitant]
     Active Substance: CALCITRIOL
     Dosage: 1 UG, Q56H
     Route: 065
     Dates: start: 20200611, end: 20200818
  10. ROCALTROL [Concomitant]
     Active Substance: CALCITRIOL
     Dosage: 0.5 MICROGRAM, Q84H
     Route: 065
     Dates: start: 20200820, end: 20201103
  11. RENAGEL [Concomitant]
     Active Substance: SEVELAMER HYDROCHLORIDE
     Indication: HYPERPHOSPHATAEMIA
     Dosage: 5000 MILLIGRAM, QD
     Route: 048
     Dates: end: 20200422
  12. RENAGEL [Concomitant]
     Active Substance: SEVELAMER HYDROCHLORIDE
     Dosage: 2000 MILLIGRAM, Q12H
     Route: 048
     Dates: start: 20200611, end: 20201017
  13. KIKLIN [Concomitant]
     Active Substance: BIXALOMER
     Indication: HYPERPHOSPHATAEMIA
     Dosage: 2500 MG, EVERYDAY
     Route: 048
     Dates: end: 20200527
  14. KIKLIN [Concomitant]
     Active Substance: BIXALOMER
     Dosage: 500 MG, Q12H
     Route: 048
     Dates: start: 20200611, end: 20201017
  15. PRECIPITATED CALCIUM CARBONATE [Concomitant]
     Active Substance: CALCIUM CARBONATE
     Dosage: 1000 MG, Q12H
     Route: 048
     Dates: start: 20200423, end: 20201017
  16. LANSOPRAZOLE. [Concomitant]
     Active Substance: LANSOPRAZOLE
     Indication: GASTROOESOPHAGEAL REFLUX DISEASE
     Dosage: 15 MILLIGRAM, QD
     Route: 048
  17. EPINASTINE HYDROCHLORIDE. [Concomitant]
     Active Substance: EPINASTINE HYDROCHLORIDE
     Indication: PRURITUS
     Dosage: 20 MG, EVERYDAY
     Route: 048
     Dates: start: 20200806
  18. PRECIPITATED CALCIUM CARBONATE [Concomitant]
     Active Substance: CALCIUM CARBONATE
     Indication: HYPERPHOSPHATAEMIA
     Dosage: 2000 MG, EVERYDAY
     Route: 048
     Dates: end: 20200422
  19. PRECIPITATED CALCIUM CARBONATE [Concomitant]
     Active Substance: CALCIUM CARBONATE
     Dosage: 3000 MG, EVERYDAY
     Route: 048
     Dates: start: 20200423, end: 20201017
  20. KAYEXALATE [Concomitant]
     Active Substance: SODIUM POLYSTYRENE SULFONATE
     Indication: HYPERKALAEMIA
     Dosage: 1 DF, EVERYDAY
     Route: 048
     Dates: end: 20201015
  21. MIKELUNA [Concomitant]
     Indication: GLAUCOMA
     Dosage: ADDEQUATE QUANTITY, QW
     Route: 047
  22. PARSABIV [Suspect]
     Active Substance: ETELCALCETIDE HYDROCHLORIDE
     Indication: HYPERPARATHYROIDISM SECONDARY
     Dosage: 5 MILLIGRAM, Q56H
     Route: 010
     Dates: start: 20200319
  23. RESTAMIN CORTISONE [Concomitant]
     Active Substance: DIPHENHYDRAMINE HYDROCHLORIDE\HYDROCORTISONE ACETATE\NEOMYCIN SULFATE
     Indication: PRURITUS
     Dosage: APPROPRIATE AMOUNT  SEVERAL  TIMES  A  DAY
     Route: 062
     Dates: start: 20200912
  24. ROCALTROL [Concomitant]
     Active Substance: CALCITRIOL
     Dosage: 1 UG, Q56H
     Route: 065
     Dates: start: 20200423, end: 20200512
  25. ROCALTROL [Concomitant]
     Active Substance: CALCITRIOL
     Dosage: 1.5 UG, Q84H
     Route: 065
     Dates: start: 20200514, end: 20200609
  26. RENAGEL [Concomitant]
     Active Substance: SEVELAMER HYDROCHLORIDE
     Dosage: 2000 MILLIGRAM, QD
     Route: 048
     Dates: start: 20200423, end: 20200610
  27. KIKLIN [Concomitant]
     Active Substance: BIXALOMER
     Dosage: 2000 MG, EVERYDAY
     Route: 048
     Dates: start: 20200611, end: 20201017
  28. P?TOL [SUCROFERRIC OXYHYDROXIDE] [Concomitant]
     Active Substance: SUCROFERRIC OXYHYDROXIDE
     Dosage: 1000 MG, EVERYDAY
     Route: 065
     Dates: start: 20200423, end: 20200504
  29. RIONA [Concomitant]
     Active Substance: FERRIC CITRATE ANHYDROUS
     Dosage: 500 MG, EVERYDAY
     Route: 065
     Dates: start: 20200505, end: 20200513
  30. RIONA [Concomitant]
     Active Substance: FERRIC CITRATE ANHYDROUS
     Dosage: 1000 MG, EVERYDAY
     Route: 065
     Dates: start: 20200514, end: 20200528
  31. NORVASC [Concomitant]
     Active Substance: AMLODIPINE BESYLATE
     Indication: HYPERTENSION
     Dosage: 5 MG, EVERYDAY
     Route: 048
     Dates: start: 20200611, end: 20201016
  32. ROCALTROL [Concomitant]
     Active Substance: CALCITRIOL
     Dosage: 0.5 MICROGRAM, Q84H
     Route: 065
     Dates: start: 20201105, end: 20210119
  33. RENAGEL [Concomitant]
     Active Substance: SEVELAMER HYDROCHLORIDE
     Dosage: 4000 MG, EVERYDAY
     Route: 048
     Dates: start: 20200611, end: 20201017

REACTIONS (4)
  - Extradural abscess [Recovering/Resolving]
  - Arrhythmia [Recovered/Resolved]
  - Renal aneurysm [Recovering/Resolving]
  - Muscle abscess [Recovering/Resolving]

NARRATIVE: CASE EVENT DATE: 20200523
